FAERS Safety Report 17261136 (Version 3)
Quarter: 2020Q1

REPORT INFORMATION
  Report Type: Report from Study
  Country: CA (occurrence: CA)
  Receive Date: 20200113
  Receipt Date: 20200317
  Transmission Date: 20200409
  Serious: Yes (Other)
  Sender: FDA-Public Use
  Company Number: CA-JNJFOC-20191235006

PATIENT
  Age: 48 Year
  Sex: Male
  Weight: 78 kg

DRUGS (2)
  1. REMICADE [Suspect]
     Active Substance: INFLIXIMAB
     Indication: CROHN^S DISEASE
     Dosage: DOSE CHANGED FROM 800 MG STAT FOR 2, 4 WEEKS, THEN 4 WEEKS TO 400 MG STAT FOR 2 AND THEN ONCE EVERY
     Route: 042
     Dates: start: 20130925
  2. REMICADE [Suspect]
     Active Substance: INFLIXIMAB
     Dosage: ON 03/MAR/2020 PATIENT RECEIVED 63RD REMICADE 400 MG INFUSION
     Route: 042

REACTIONS (2)
  - Crohn^s disease [Not Recovered/Not Resolved]
  - Colectomy [Recovering/Resolving]

NARRATIVE: CASE EVENT DATE: 20191204
